APPROVED DRUG PRODUCT: EDLUAR
Active Ingredient: ZOLPIDEM TARTRATE
Strength: 10MG
Dosage Form/Route: TABLET;SUBLINGUAL
Application: N021997 | Product #002 | TE Code: AB
Applicant: VIATRIS SPECIALTY LLC
Approved: Mar 13, 2009 | RLD: Yes | RS: Yes | Type: RX

PATENTS:
Patent 9265720 | Expires: Feb 25, 2031
Patent 9597281 | Expires: Apr 6, 2027